FAERS Safety Report 21255045 (Version 2)
Quarter: 2022Q3

REPORT INFORMATION
  Report Type: Report from Study
  Country: CA (occurrence: CA)
  Receive Date: 20220825
  Receipt Date: 20220913
  Transmission Date: 20221026
  Serious: Yes (Hospitalization, Other)
  Sender: FDA-Public Use
  Company Number: CA-NOVARTISPH-NVSC2022CA190595

PATIENT
  Sex: Male

DRUGS (2)
  1. ERELZI [Suspect]
     Active Substance: ETANERCEPT-SZZS
     Indication: Psoriatic arthropathy
     Dosage: 50 MG, QW
     Route: 058
     Dates: start: 20190319
  2. BARICITINIB [Concomitant]
     Active Substance: BARICITINIB
     Indication: Product used for unknown indication
     Dosage: UNK
     Route: 065

REACTIONS (8)
  - Localised infection [Unknown]
  - Renal failure [Unknown]
  - Diabetes mellitus [Unknown]
  - Osteoarthritis [Unknown]
  - Peripheral venous disease [Unknown]
  - Ill-defined disorder [Unknown]
  - General physical health deterioration [Unknown]
  - Drug ineffective [Unknown]
